FAERS Safety Report 8799681 (Version 1)
Quarter: 2012Q4

REPORT INFORMATION
  Report Type: Spontaneous
  Country: JP (occurrence: None)
  Receive Date: 20120914
  Receipt Date: 20120914
  Transmission Date: 20130627
  Serious: Yes (Hospitalization)
  Sender: FDA-Public Use
  Company Number: DKLU1084456

PATIENT
  Age: 81 Year
  Sex: Male

DRUGS (6)
  1. TRANXENE [Suspect]
     Dosage: 2 DF dosage form, 2 in 1 D ,  Oral
     Dates: start: 20120807
  2. VALSARTAN (VALSARTAN) [Concomitant]
  3. ASPRIN (ACETYLSALICYLIC ACID) TABLET [Concomitant]
  4. TRICHLOROTHIAZIDE (CHLOROTHIAZIDE ACID) TABLET [Concomitant]
  5. CHOTOSAN (HERBAL EXTRACT NOS) [Concomitant]
  6. DAIOKANZOTO (DAIKANZOTO) [Concomitant]

REACTIONS (3)
  - Urinary retention [None]
  - Sensation of heaviness [None]
  - Movement disorder [None]
